FAERS Safety Report 9147826 (Version 2)
Quarter: 2013Q4

REPORT INFORMATION
  Report Type: Spontaneous
  Country: US (occurrence: US)
  Receive Date: 20130307
  Receipt Date: 20131018
  Transmission Date: 20140711
  Serious: Yes (Hospitalization, Other)
  Sender: FDA-Public Use
  Company Number: US-ELI_LILLY_AND_COMPANY-US201302010410

PATIENT
  Sex: Female

DRUGS (5)
  1. ADCIRCA [Suspect]
     Indication: PULMONARY HYPERTENSION
     Dosage: 40 MG, QD
     Route: 048
  2. LETAIRIS [Concomitant]
  3. VESICARE [Concomitant]
  4. NORVASC [Concomitant]
  5. LEVOTHYROXINE [Concomitant]

REACTIONS (6)
  - Disease progression [Unknown]
  - Thrombosis [Unknown]
  - Hepatomegaly [Unknown]
  - Splenomegaly [Unknown]
  - Pain [Unknown]
  - Ileus [Unknown]
